FAERS Safety Report 7400551-1 (Version None)
Quarter: 2011Q2

REPORT INFORMATION
  Report Type: 
  Country: None (occurrence: None)
  Receive Date: 20110407
  Receipt Date: 20110311
  Transmission Date: 20111010
  Serious: No
  Sender: FDA-Public Use
  Company Number: US-B.I. PHARMACEUTICALS,INC./RIDGEFIELD-2011-BP-07758BP

PATIENT
  Age: 84 Year
  Sex: Female

DRUGS (2)
  1. PRADAXA [Suspect]
     Indication: ATRIAL FIBRILLATION
     Dosage: 300 MG
     Route: 048
     Dates: start: 20110225
  2. OMEPRAZOLE [Concomitant]
     Indication: GASTROOESOPHAGEAL REFLUX DISEASE

REACTIONS (4)
  - PAIN IN EXTREMITY [None]
  - MUSCULAR WEAKNESS [None]
  - GASTROOESOPHAGEAL REFLUX DISEASE [None]
  - ABDOMINAL DISCOMFORT [None]
